FAERS Safety Report 6582591-8 (Version None)
Quarter: 2010Q1

REPORT INFORMATION
  Report Type: 
  Country: None (occurrence: None)
  Receive Date: 20100216
  Receipt Date: 20100202
  Transmission Date: 20100710
  Serious: Yes (Hospitalization)
  Sender: FDA-Public Use
  Company Number: US-SANOFI-AVENTIS-2010SA008373

PATIENT
  Age: 66 Year
  Sex: Male

DRUGS (2)
  1. LOVENOX [Suspect]
     Indication: PROPHYLAXIS
     Dosage: PRESCRIBED AFTER DIAGNOSED WITH MILD STROKE
     Route: 058
     Dates: start: 20091220, end: 20100110
  2. LOVENOX [Suspect]
     Dosage: DISCHARGED TO HOME ON 120 MG QD
     Route: 058
     Dates: start: 20100110

REACTIONS (2)
  - DEEP VEIN THROMBOSIS [None]
  - OEDEMA PERIPHERAL [None]
